FAERS Safety Report 10057560 (Version 1)
Quarter: 2014Q2

REPORT INFORMATION
  Report Type: Report from Study
  Country: AU (occurrence: AU)
  Receive Date: 20140404
  Receipt Date: 20140404
  Transmission Date: 20141212
  Serious: Yes (Other)
  Sender: FDA-Public Use
  Company Number: PHHY2014AU039691

PATIENT
  Age: 81 Year
  Sex: Female

DRUGS (3)
  1. EVEROLIMUS [Suspect]
     Indication: BREAST CANCER METASTATIC
     Dosage: 10 MG, DAY
  2. EXEMESTANE [Suspect]
     Dosage: 25 MG, DAY
  3. DENOSUMAB [Concomitant]

REACTIONS (3)
  - Blood calcium increased [Unknown]
  - Musculoskeletal pain [Unknown]
  - Back pain [Unknown]
